FAERS Safety Report 19506864 (Version 1)
Quarter: 2021Q3

REPORT INFORMATION
  Report Type: Spontaneous
  Country: US (occurrence: US)
  Receive Date: 20210708
  Receipt Date: 20210708
  Transmission Date: 20211014
  Serious: Yes (Hospitalization)
  Sender: FDA-Public Use
  Company Number: None

PATIENT
  Age: 48 Year
  Sex: Female
  Weight: 95 kg

DRUGS (1)
  1. DOCETAXEL. [Suspect]
     Active Substance: DOCETAXEL
     Indication: BREAST CANCER
     Dosage: ?          OTHER FREQUENCY:EVERY 3 WEEKS;?
     Route: 042
     Dates: start: 20210707

REACTIONS (7)
  - Chest discomfort [None]
  - Hypoaesthesia [None]
  - Heart rate increased [None]
  - Chills [None]
  - Dyspnoea [None]
  - Blood pressure increased [None]
  - Flushing [None]

NARRATIVE: CASE EVENT DATE: 20210707
